FAERS Safety Report 10437163 (Version 1)
Quarter: 2014Q3

REPORT INFORMATION
  Report Type: Spontaneous
  Country: US (occurrence: US)
  Receive Date: 20140908
  Receipt Date: 20140908
  Transmission Date: 20150326
  Serious: Yes (Hospitalization)
  Sender: FDA-Public Use
  Company Number: US-BRISTOL-MYERS SQUIBB COMPANY-20340402

PATIENT
  Age: 24 Year
  Sex: Male
  Weight: 54.42 kg

DRUGS (2)
  1. XANAX [Concomitant]
     Active Substance: ALPRAZOLAM
     Dosage: ? TABLET SOMETIMES TWICE DAILY, USUALLY ONLY NIGHT FOR SLEEP
  2. ABILIFY [Suspect]
     Active Substance: ARIPIPRAZOLE
     Dosage: DOSE INCREASED:10 MG:JAN2014
     Dates: start: 201312

REACTIONS (3)
  - Adverse event [Unknown]
  - Weight decreased [Unknown]
  - Drug dose omission [Unknown]
